FAERS Safety Report 7985936-7 (Version None)
Quarter: 2011Q4

REPORT INFORMATION
  Report Type: 
  Country: None (occurrence: None)
  Receive Date: 20111216
  Receipt Date: 20111207
  Transmission Date: 20120403
  Serious: Yes (Life-Threatening, Hospitalization)
  Sender: FDA-Public Use
  Company Number: GB-B.I. PHARMACEUTICALS,INC./RIDGEFIELD-2011-UK-01342UK

PATIENT
  Sex: Female
  Weight: 87.2 kg

DRUGS (6)
  1. QUININE SULFATE [Concomitant]
     Indication: MUSCLE SPASMS
     Dosage: 300 MG
     Route: 048
     Dates: start: 20110901
  2. BI 1356 [Suspect]
     Dosage: 5 MG
     Route: 048
     Dates: start: 20110614
  3. ACETAMINOPHEN [Concomitant]
     Indication: HEADACHE
     Dosage: 4 G PRN
     Route: 048
     Dates: start: 20110701
  4. CO-DYDRAMOL  10/500 [Concomitant]
     Indication: HEADACHE
     Dosage: STRENGTH: 10/500, DAILY DOSE: 8 TABS MAX PRN
     Route: 048
     Dates: start: 20110914
  5. SIMVASTATIN [Concomitant]
     Indication: THROMBOSIS PROPHYLAXIS
     Dosage: 40 MG
     Route: 048
     Dates: start: 20100715
  6. BI 1356 [Suspect]
     Indication: TYPE 2 DIABETES MELLITUS
     Dosage: 5 MG
     Route: 048
     Dates: start: 20110614

REACTIONS (1)
  - IDIOPATHIC THROMBOCYTOPENIC PURPURA [None]
